FAERS Safety Report 11533884 (Version 2)
Quarter: 2015Q4

REPORT INFORMATION
  Report Type: Report from Study
  Country: US (occurrence: US)
  Receive Date: 20150922
  Receipt Date: 20151001
  Transmission Date: 20160304
  Serious: Yes (Other)
  Sender: FDA-Public Use
  Company Number: US-KADMON PHARMACEUTICALS, LLC-KAD201508-002892

PATIENT
  Age: 57 Year
  Sex: Male
  Weight: 87.54 kg

DRUGS (17)
  1. CONCERTA [Concomitant]
     Active Substance: METHYLPHENIDATE HYDROCHLORIDE
  2. BUPROPION XL [Concomitant]
     Active Substance: BUPROPION
  3. FLUOXETINE [Concomitant]
     Active Substance: FLUOXETINE HYDROCHLORIDE
  4. CLONAZEPAM. [Concomitant]
     Active Substance: CLONAZEPAM
  5. RIBAVIRIN 600 MG [Suspect]
     Active Substance: RIBAVIRIN
     Dates: start: 20150610
  6. PROPRANOLOL [Concomitant]
     Active Substance: PROPRANOLOL\PROPRANOLOL HYDROCHLORIDE
  7. FUROSEMIDE. [Concomitant]
     Active Substance: FUROSEMIDE
  8. FINASTERIDE. [Concomitant]
     Active Substance: FINASTERIDE
  9. OXISTAT [Concomitant]
     Active Substance: OXICONAZOLE NITRATE
  10. RIBAVIRIN 600 MG [Suspect]
     Active Substance: RIBAVIRIN
  11. VIEKIRA PAK [Suspect]
     Active Substance: DASABUVIR\OMBITASVIR\PARITAPREVIR\RITONAVIR
     Indication: HEPATITIS C
     Dosage: TWO PINK TABLETS WITH ONE BEIGE IN AM, ONE BEIGE IN PM
     Route: 048
     Dates: start: 20150610
  12. AMLODIPINE BESYLATE. [Concomitant]
     Active Substance: AMLODIPINE BESYLATE
  13. KETOCONAZOLE. [Concomitant]
     Active Substance: KETOCONAZOLE
  14. SAPHRIS [Concomitant]
     Active Substance: ASENAPINE MALEATE
  15. NITROFURANTOIN. [Concomitant]
     Active Substance: NITROFURANTOIN
  16. METHYLPHENIDATE. [Concomitant]
     Active Substance: METHYLPHENIDATE
  17. MULTIVITAMIN (VIGRAN) [Concomitant]

REACTIONS (17)
  - Fatigue [Unknown]
  - Dyspnoea [Unknown]
  - Depression [Unknown]
  - Dry skin [Unknown]
  - Nausea [Unknown]
  - Anaemia [Unknown]
  - Weight decreased [Unknown]
  - Yellow skin [Unknown]
  - Mood altered [Unknown]
  - Insomnia [Unknown]
  - Orthostatic hypotension [Unknown]
  - Fluid retention [Unknown]
  - Dry mouth [Unknown]
  - Daydreaming [Unknown]
  - Dysphonia [Unknown]
  - Rash [Unknown]
  - Pallor [Unknown]

NARRATIVE: CASE EVENT DATE: 201506
